FAERS Safety Report 5965050-2 (Version None)
Quarter: 2008Q4

REPORT INFORMATION
  Report Type: 
  Country: None (occurrence: None)
  Receive Date: 20081125
  Receipt Date: 20081110
  Transmission Date: 20090506
  Serious: Yes (Other)
  Sender: FDA-Public Use
  Company Number: IT-GENENTECH-271843

PATIENT
  Sex: Female

DRUGS (1)
  1. BEVACIZUMAB [Suspect]
     Indication: BREAST CANCER METASTATIC
     Dosage: 1140 MG, Q21D
     Route: 042
     Dates: start: 20080429

REACTIONS (3)
  - GASTRIC VARICES [None]
  - HAEMATEMESIS [None]
  - PORTAL HYPERTENSION [None]
